FAERS Safety Report 6057799-0 (Version None)
Quarter: 2009Q1

REPORT INFORMATION
  Report Type: 
  Country: None (occurrence: None)
  Receive Date: 20090129
  Receipt Date: 20090127
  Transmission Date: 20090719
  Serious: Yes (Death)
  Sender: FDA-Public Use
  Company Number: PHBS2009US00647

PATIENT
  Sex: Male

DRUGS (2)
  1. METHYLPHENIDATE HCL [Suspect]
     Indication: ATTENTION DEFICIT/HYPERACTIVITY DISORDER
     Dosage: UNK
  2. ATOMOXETINE HCL [Suspect]
     Dosage: 80 MG/DAY

REACTIONS (2)
  - HEPATIC FAILURE [None]
  - RENAL FAILURE [None]
